FAERS Safety Report 16649111 (Version 2)
Quarter: 2019Q3

REPORT INFORMATION
  Report Type: Spontaneous
  Country: BR (occurrence: BR)
  Receive Date: 20190730
  Receipt Date: 20190814
  Transmission Date: 20191004
  Serious: Yes (Death, Life-Threatening, Hospitalization)
  Sender: FDA-Public Use
  Company Number: BR-JNJFOC-20190730714

PATIENT
  Age: 70 Year
  Sex: Female

DRUGS (1)
  1. RIVAROXABAN [Suspect]
     Active Substance: RIVAROXABAN
     Indication: DEEP VEIN THROMBOSIS
     Dosage: 20 MG, QD
     Route: 048
     Dates: start: 20190417, end: 201907

REACTIONS (8)
  - Asthenia [Fatal]
  - Renal failure [Fatal]
  - Oedema [Fatal]
  - Hypotension [Fatal]
  - Haematoma [Fatal]
  - Hepatic failure [Fatal]
  - Skin infection [Fatal]
  - Hepatomegaly [Unknown]

NARRATIVE: CASE EVENT DATE: 201907
